FAERS Safety Report 24953492 (Version 1)
Quarter: 2025Q1

REPORT INFORMATION
  Report Type: Spontaneous
  Country: FR (occurrence: FR)
  Receive Date: 20250211
  Receipt Date: 20250211
  Transmission Date: 20250409
  Serious: Yes (Death, Life-Threatening, Hospitalization)
  Sender: JOHNSON AND JOHNSON
  Company Number: FR-JNJFOC-20250209646

PATIENT
  Age: 39 Year
  Sex: Male

DRUGS (3)
  1. HALOPERIDOL [Suspect]
     Active Substance: HALOPERIDOL
     Indication: Schizophrenia
     Route: 065
  2. CYAMEMAZINE [Suspect]
     Active Substance: CYAMEMAZINE
     Indication: Schizophrenia
     Route: 065
  3. TROPATEPINE [Suspect]
     Active Substance: TROPATEPINE
     Indication: Product used for unknown indication

REACTIONS (16)
  - Rhabdomyolysis [Fatal]
  - Renal failure [Fatal]
  - Hyperkalaemia [Fatal]
  - Neuroleptic malignant syndrome [Fatal]
  - Hyperthermia [Fatal]
  - Metabolic acidosis [Fatal]
  - Hepatic cytolysis [Fatal]
  - Hyperferritinaemia [Fatal]
  - Hyperglycaemia [Fatal]
  - Shock [Fatal]
  - Multiple organ dysfunction syndrome [Fatal]
  - Disseminated intravascular coagulation [Fatal]
  - Leukocytosis [Fatal]
  - Coma [Fatal]
  - Mydriasis [Fatal]
  - Hypotension [Fatal]
